FAERS Safety Report 9018296 (Version 1)
Quarter: 2013Q1

REPORT INFORMATION
  Report Type: Spontaneous
  Country: US (occurrence: None)
  Receive Date: 20130111
  Receipt Date: 20130111
  Transmission Date: 20140127
  Serious: No
  Sender: FDA-Public Use
  Company Number: None

PATIENT
  Sex: 0

DRUGS (1)
  1. CREST PRO-HEALTH COMPLETE (FRESH MINT) [Suspect]
     Dates: start: 20121219, end: 20121220

REACTIONS (2)
  - Oral mucosal blistering [None]
  - Ageusia [None]
